FAERS Safety Report 12853834 (Version 1)
Quarter: 2016Q4

REPORT INFORMATION
  Report Type: Spontaneous
  Country: AZ (occurrence: AZ)
  Receive Date: 20161017
  Receipt Date: 20161017
  Transmission Date: 20170207
  Serious: Yes (Other)
  Sender: FDA-Public Use
  Company Number: AZ-NOVOPROD-501914

PATIENT
  Age: 33 Year
  Sex: Female

DRUGS (1)
  1. NOVORAPID [Suspect]
     Active Substance: INSULIN ASPART
     Indication: GESTATIONAL DIABETES
     Dosage: 24 U, QD (6U - 6U - 6U - 6U)
     Route: 058
     Dates: start: 201512

REACTIONS (2)
  - Exposure during pregnancy [Recovered/Resolved]
  - Stillbirth [Recovering/Resolving]

NARRATIVE: CASE EVENT DATE: 201512
